FAERS Safety Report 7912123-0 (Version None)
Quarter: 2011Q4

REPORT INFORMATION
  Report Type: 
  Country: None (occurrence: None)
  Receive Date: 20111114
  Receipt Date: 20110119
  Transmission Date: 20120403
  Serious: No
  Sender: FDA-Public Use
  Company Number: US-BAYER-2011-007170

PATIENT
  Sex: Female

DRUGS (1)
  1. CLIMARA [Suspect]
     Dosage: 0.1 MG/D, UNK

REACTIONS (4)
  - EMOTIONAL DISORDER [None]
  - PRODUCT ADHESION ISSUE [None]
  - APPLICATION SITE REACTION [None]
  - TEARFULNESS [None]
